FAERS Safety Report 22190596 (Version 2)
Quarter: 2023Q2

REPORT INFORMATION
  Report Type: Other
  Country: FR (occurrence: FR)
  Receive Date: 20230410
  Receipt Date: 20230418
  Transmission Date: 20230721
  Serious: Yes (Other)
  Sender: FDA-Public Use
  Company Number: FR-ASTELLAS-2023US011125

PATIENT
  Age: 69 Year
  Sex: Male

DRUGS (22)
  1. XOSPATA [Suspect]
     Active Substance: GILTERITINIB
     Indication: Chronic myelomonocytic leukaemia
     Dosage: 80 MG (40 MG: 2 TABLETS IN ONE INTAKE THE MORNING), ONCE DAILY
     Route: 048
     Dates: start: 20221012, end: 20221124
  2. XOSPATA [Suspect]
     Active Substance: GILTERITINIB
     Route: 048
     Dates: start: 20221124, end: 20230204
  3. HYDREA [Concomitant]
     Active Substance: HYDROXYUREA
     Indication: Product used for unknown indication
     Route: 065
     Dates: end: 20221031
  4. HYDREA [Concomitant]
     Active Substance: HYDROXYUREA
     Dosage: 1 DF (CAPSULE/DAY), ONCE DAILY
     Route: 065
  5. HYDREA [Concomitant]
     Active Substance: HYDROXYUREA
     Dosage: UNK UNK, UNKNOWN FREQ. (INCREASED DOSE)
     Route: 065
  6. POTASSIUM CHLORIDE [Concomitant]
     Active Substance: POTASSIUM CHLORIDE
     Indication: Product used for unknown indication
     Dosage: 2 DF (2 CAPSULES IN THE MORNING, 2 AT NOON AND 2 IN THE EVENING), THRICE DAILY
     Route: 065
     Dates: end: 20221113
  7. POTASSIUM CHLORIDE [Concomitant]
     Active Substance: POTASSIUM CHLORIDE
     Dosage: 2 DF, ONCE DAILY (2 CAPSULES AT NOON)
     Route: 065
  8. Oracillin [Concomitant]
     Indication: Product used for unknown indication
     Dosage: 1 DF, TWICE DAILY (1 TABLET MORNING AND EVENING)
     Route: 065
  9. VALACYCLOVIR HYDROCHLORIDE [Concomitant]
     Active Substance: VALACYCLOVIR HYDROCHLORIDE
     Indication: Product used for unknown indication
     Dosage: 1 DF, ONCE DAILY (1 TABLET IN THE MORNING)
     Route: 065
  10. POSACONAZOLE [Concomitant]
     Active Substance: POSACONAZOLE
     Indication: Product used for unknown indication
     Dosage: UNK UNK, ONCE DAILY (3 IN THE MORNING)
     Route: 065
  11. ATOVAQUONE [Concomitant]
     Active Substance: ATOVAQUONE
     Indication: Product used for unknown indication
     Dosage: 5 ML, TWICE DAILY (ML MORNING AND EVENING)
     Route: 065
  12. RAMIPRIL [Concomitant]
     Active Substance: RAMIPRIL
     Indication: Product used for unknown indication
     Route: 065
  13. AMLODIPINE [Concomitant]
     Active Substance: AMLODIPINE BESYLATE
     Indication: Product used for unknown indication
     Route: 065
  14. INIPOMP [Concomitant]
     Active Substance: PANTOPRAZOLE SODIUM
     Indication: Product used for unknown indication
     Dosage: 20 MG, ONCE DAILY (1 IN THE EVENING)
     Route: 065
  15. PRIMPERAN [Concomitant]
     Active Substance: METOCLOPRAMIDE HYDROCHLORIDE
     Indication: Product used for unknown indication
     Dosage: 10 MG, AS NEEDED (IF NECESSARY)
     Route: 065
  16. MINERAL OIL [Concomitant]
     Active Substance: MINERAL OIL
     Indication: Product used for unknown indication
     Dosage: UNK UNK, AS NEEDED (1 TO 3 TIMES DAILY IF NEEDED)
     Route: 065
  17. POTASSIUM BITARTRATE\SODIUM BICARBONATE [Concomitant]
     Active Substance: POTASSIUM BITARTRATE\SODIUM BICARBONATE
     Indication: Product used for unknown indication
     Dosage: 1 DF, AS NEEDED (1 SUPPOSITORY IF NEEDED)
     Route: 065
  18. TRONOTHANE [Concomitant]
     Active Substance: PRAMOXINE
     Indication: Product used for unknown indication
     Dosage: 1 DF (1 APPLICATION), THRICE DAILY
     Route: 065
  19. GAVISCON [Concomitant]
     Active Substance: ALUMINUM HYDROXIDE\MAGNESIUM CARBONATE
     Indication: Product used for unknown indication
     Dosage: 1 DF, THRICE DAILY (1 SACHET 3 TIMES A DAY IF NEEDED)
     Route: 065
  20. TRAMADOL [Concomitant]
     Active Substance: TRAMADOL
     Indication: Product used for unknown indication
     Dosage: 1 DF, THRICE DAILY, IF NECESSARY
     Route: 065
  21. SMECTA [Concomitant]
     Active Substance: MONTMORILLONITE
     Indication: Product used for unknown indication
     Dosage: 1 DF (SACHET), THRICE DAILY (IF NEEDED)
     Route: 065
  22. Spasfon [Concomitant]
     Indication: Product used for unknown indication
     Dosage: 1 DF, THRICE DAILY, IF NEEDED
     Route: 065

REACTIONS (5)
  - Differentiation syndrome [Recovering/Resolving]
  - Oedema peripheral [Recovering/Resolving]
  - Pleural effusion [Recovering/Resolving]
  - Off label use [Unknown]
  - Underdose [Unknown]

NARRATIVE: CASE EVENT DATE: 20221012
